FAERS Safety Report 5519356-1 (Version None)
Quarter: 2007Q4

REPORT INFORMATION
  Report Type: 
  Country: None (occurrence: None)
  Receive Date: 20071114
  Receipt Date: 20071029
  Transmission Date: 20080405
  Serious: Yes (Other)
  Sender: FDA-Public Use
  Company Number: 2007VX002538

PATIENT
  Age: 71 Year
  Sex: Male

DRUGS (2)
  1. TASMAR (TOLCAPONE) [Suspect]
     Indication: PARKINSON'S DISEASE
     Dosage: 100 MG; TID; PO
     Route: 048
     Dates: start: 20070406, end: 20071003
  2. MADOPAR [Concomitant]

REACTIONS (1)
  - CYTOLYTIC HEPATITIS [None]
